FAERS Safety Report 25270709 (Version 2)
Quarter: 2025Q3

REPORT INFORMATION
  Report Type: Report from Study
  Country: US (occurrence: US)
  Receive Date: 20250505
  Receipt Date: 20250708
  Transmission Date: 20251020
  Serious: Yes (Hospitalization, Other)
  Sender: ABBVIE
  Company Number: US-ABBVIE-6263485

PATIENT
  Age: 71 Year
  Sex: Female
  Weight: 81.646 kg

DRUGS (1)
  1. SKYRIZI [Suspect]
     Active Substance: RISANKIZUMAB-RZAA
     Indication: Psoriasis
     Route: 058
     Dates: start: 2020

REACTIONS (4)
  - Upper limb fracture [Recovering/Resolving]
  - Fall [Recovered/Resolved]
  - Pain [Recovering/Resolving]
  - Shoulder fracture [Recovering/Resolving]

NARRATIVE: CASE EVENT DATE: 20250325
